FAERS Safety Report 7241276-5 (Version None)
Quarter: 2011Q1

REPORT INFORMATION
  Report Type: 
  Country: None (occurrence: None)
  Receive Date: 20110119
  Receipt Date: 20110119
  Transmission Date: 20110831
  Serious: Yes (Hospitalization)
  Sender: FDA-Public Use
  Company Number: None

PATIENT
  Sex: Female
  Weight: 118 kg

DRUGS (17)
  1. NYSTATIN [Concomitant]
  2. ZEASORB POWDER [Concomitant]
  3. SUNITINIB [Suspect]
     Indication: RENAL CANCER METASTATIC
     Dosage: 50MG ONCE DAILY
     Dates: start: 20100917, end: 20101007
  4. NITROGLYCERIN [Concomitant]
  5. AZOR [Concomitant]
  6. SUNITINIB [Suspect]
     Indication: RENAL CANCER METASTATIC
     Dosage: 37.5MG ONCE DAILY
     Dates: start: 20101029, end: 20110106
  7. FISH OIL [Concomitant]
  8. CALCIUM WITH VITAMIN D [Concomitant]
  9. MULTI-VITAMIN [Concomitant]
  10. METOPROLOL TARTRATE [Concomitant]
  11. COUMADIN [Concomitant]
  12. VITAMIN E [Concomitant]
  13. ASCORBIC ACID [Concomitant]
  14. DIGOXIN [Concomitant]
  15. LEVOTHYROXINE SODIUM [Concomitant]
  16. FOLIC ACID [Concomitant]
  17. NOVOLOG [Concomitant]

REACTIONS (1)
  - NEPHROTIC SYNDROME [None]
